FAERS Safety Report 6549262-5 (Version None)
Quarter: 2010Q1

REPORT INFORMATION
  Report Type: 
  Country: None (occurrence: None)
  Receive Date: 20100125
  Receipt Date: 20100120
  Transmission Date: 20100710
  Serious: Yes (Death)
  Sender: FDA-Public Use
  Company Number: CH-SANOFI-AVENTIS-2010SA003778

PATIENT
  Age: 72 Year
  Sex: Female

DRUGS (3)
  1. AVE1642 [Suspect]
     Route: 042
     Dates: start: 20090323, end: 20090323
  2. AVE1642 [Suspect]
  3. DOCETAXEL [Suspect]
     Route: 042

REACTIONS (1)
  - DEATH [None]
